FAERS Safety Report 18521523 (Version 2)
Quarter: 2020Q4

REPORT INFORMATION
  Report Type: Spontaneous
  Country: US (occurrence: US)
  Receive Date: 20201119
  Receipt Date: 20201119
  Transmission Date: 20210114
  Serious: No
  Sender: FDA-Public Use
  Company Number: US-JNJFOC-20201107395

PATIENT
  Age: 17 Year
  Sex: Male

DRUGS (1)
  1. MENS ROGAINE EXTRA STRENGTH [Suspect]
     Active Substance: MINOXIDIL
     Indication: ALOPECIA
     Route: 061
     Dates: start: 20201102

REACTIONS (2)
  - Product administered to patient of inappropriate age [Unknown]
  - Application site pruritus [Recovered/Resolved]

NARRATIVE: CASE EVENT DATE: 20201102
